FAERS Safety Report 8786376 (Version 2)
Quarter: 2012Q4

REPORT INFORMATION
  Report Type: 
  Country: FR (occurrence: FR)
  Receive Date: 20120914
  Receipt Date: 20121101
  Transmission Date: 20130627
  Serious: Yes (Other)
  Sender: FDA-Public Use
  Company Number: FR-PFIZER INC-2012223840

PATIENT
  Age: 47 Year
  Sex: Female
  Weight: 53 kg

DRUGS (1)
  1. RELPAX [Suspect]
     Indication: MIGRAINE
     Dosage: 40 mg, 3 to 4 DF weekly

REACTIONS (4)
  - Hyporesponsive to stimuli [Unknown]
  - Emotional disorder [Unknown]
  - Disturbance in attention [Unknown]
  - Somnolence [Unknown]
